FAERS Safety Report 5389102-3 (Version None)
Quarter: 2007Q3

REPORT INFORMATION
  Report Type: 
  Country: None (occurrence: None)
  Receive Date: 20070717
  Receipt Date: 20070704
  Transmission Date: 20080115
  Serious: Yes (Other)
  Sender: FDA-Public Use
  Company Number: BR-JNJFOC-20070701463

PATIENT
  Age: 53 Year
  Sex: Female
  Weight: 67 kg

DRUGS (2)
  1. IMOSEC [Suspect]
     Indication: DIARRHOEA
     Route: 048
  2. CHEMOTHERAPY [Concomitant]
     Indication: UTERINE CANCER
     Route: 065

REACTIONS (2)
  - DRUG INEFFECTIVE [None]
  - PULMONARY EMBOLISM [None]
